FAERS Safety Report 17059594 (Version 3)
Quarter: 2020Q3

REPORT INFORMATION
  Report Type: Spontaneous
  Country: US (occurrence: US)
  Receive Date: 20191121
  Receipt Date: 20200703
  Transmission Date: 20201102
  Serious: Yes (Other)
  Sender: FDA-Public Use
  Company Number: US-SA-2019SA321257

PATIENT

DRUGS (1)
  1. DUPIXENT [Suspect]
     Active Substance: DUPILUMAB
     Indication: ASTHMA
     Dosage: 300 MG, QOW
     Route: 058
     Dates: start: 20190801

REACTIONS (5)
  - Rash erythematous [Unknown]
  - Rash papular [Unknown]
  - Genital abscess [Unknown]
  - Rash papular [Unknown]
  - Furuncle [Unknown]

NARRATIVE: CASE EVENT DATE: 2019
